FAERS Safety Report 18014574 (Version 1)
Quarter: 2020Q3

REPORT INFORMATION
  Report Type: Spontaneous
  Country: US (occurrence: US)
  Receive Date: 20200713
  Receipt Date: 20200713
  Transmission Date: 20201103
  Serious: Yes (Hospitalization)
  Sender: FDA-Public Use
  Company Number: None

PATIENT
  Age: 59 Year
  Sex: Male

DRUGS (7)
  1. HYDROCODO/APAP [Concomitant]
  2. EZETIMIBE. [Concomitant]
     Active Substance: EZETIMIBE
  3. FENOFIBRATE. [Concomitant]
     Active Substance: FENOFIBRATE
  4. REPATHA [Suspect]
     Active Substance: EVOLOCUMAB
     Indication: PRODUCT USED FOR UNKNOWN INDICATION
     Dosage: ?          OTHER FREQUENCY:EVERY 14 DAYS;?
     Route: 058
     Dates: start: 20200608
  5. CELECOXIB. [Concomitant]
     Active Substance: CELECOXIB
  6. MINOCYCLINE [Concomitant]
     Active Substance: MINOCYCLINE HYDROCHLORIDE
  7. STOOL SOFTNR [Concomitant]

REACTIONS (3)
  - Pyrexia [None]
  - Infection [None]
  - Therapy interrupted [None]

NARRATIVE: CASE EVENT DATE: 20200702
